FAERS Safety Report 12849569 (Version 4)
Quarter: 2018Q2

REPORT INFORMATION
  Report Type: Spontaneous
  Country: US (occurrence: US)
  Receive Date: 20161014
  Receipt Date: 20180507
  Transmission Date: 20180711
  Serious: No
  Sender: FDA-Public Use
  Company Number: US-ROCHE-1779215

PATIENT
  Sex: Male

DRUGS (1)
  1. ESBRIET [Suspect]
     Active Substance: PIRFENIDONE
     Indication: IDIOPATHIC PULMONARY FIBROSIS
     Route: 048
     Dates: start: 20160514

REACTIONS (6)
  - Flatulence [Unknown]
  - Abdominal distension [Unknown]
  - Sneezing [Unknown]
  - Dry mouth [Unknown]
  - Dry eye [Unknown]
  - Dizziness [Unknown]
